FAERS Safety Report 4700725-4 (Version None)
Quarter: 2005Q2

REPORT INFORMATION
  Report Type: 
  Country: None (occurrence: None)
  Receive Date: 20050627
  Receipt Date: 20050607
  Transmission Date: 20051028
  Serious: Yes (Life-Threatening, Hospitalization)
  Sender: FDA-Public Use
  Company Number: 2005FR-00014

PATIENT
  Age: 59 Year
  Sex: Male
  Weight: 80 kg

DRUGS (7)
  1. LISINOPRIL [Suspect]
     Indication: CARDIAC FAILURE
     Dosage: 20 MG, UNK, ORAL
     Route: 048
  2. LISINOPRIL [Suspect]
     Indication: HYPERTENSION
     Dosage: 20 MG, UNK, ORAL
     Route: 048
  3. FRUSEMIDE [Concomitant]
  4. ALLOPURINOL [Concomitant]
  5. COLCHICINE [Concomitant]
  6. ATENOLOL [Concomitant]
  7. OXAZEPAM [Concomitant]

REACTIONS (4)
  - CONDITION AGGRAVATED [None]
  - DIARRHOEA [None]
  - LETHARGY [None]
  - RENAL FAILURE CHRONIC [None]
